FAERS Safety Report 24747307 (Version 1)
Quarter: 2024Q4

REPORT INFORMATION
  Report Type: Spontaneous
  Country: US (occurrence: US)
  Receive Date: 20241218
  Receipt Date: 20241218
  Transmission Date: 20250114
  Serious: Yes (Other)
  Sender: GLAXOSMITHKLINE
  Company Number: US-GSK-US2024AMR157694

PATIENT
  Age: 39 Year

DRUGS (1)
  1. JEMPERLI [Suspect]
     Active Substance: DOSTARLIMAB\DOSTARLIMAB-GXLY
     Indication: Colorectal cancer
     Dosage: UNK UNK, Q3W

REACTIONS (2)
  - Hypothyroidism [Not Recovered/Not Resolved]
  - Product use in unapproved indication [Unknown]
